FAERS Safety Report 24538897 (Version 3)
Quarter: 2025Q3

REPORT INFORMATION
  Report Type: Report from Study
  Country: CA (occurrence: CA)
  Receive Date: 20241023
  Receipt Date: 20250930
  Transmission Date: 20251021
  Serious: Yes (Other)
  Sender: BIOCON
  Company Number: CA-BIOCON BIOLOGICS LIMITED-BBL2024007159

PATIENT

DRUGS (5)
  1. HULIO [Suspect]
     Active Substance: ADALIMUMAB-FKJP
     Indication: Ankylosing spondylitis
     Route: 058
     Dates: start: 20221024
  2. HULIO [Suspect]
     Active Substance: ADALIMUMAB-FKJP
     Indication: Colitis ulcerative
     Dosage: 40 MILLIGRAM, Q2W (BIWEEKLY)
     Route: 058
     Dates: start: 20221031
  3. HULIO [Suspect]
     Active Substance: ADALIMUMAB-FKJP
  4. HULIO [Suspect]
     Active Substance: ADALIMUMAB-FKJP
  5. HULIO [Suspect]
     Active Substance: ADALIMUMAB-FKJP

REACTIONS (2)
  - Inflammatory bowel disease [Unknown]
  - Off label use [Unknown]
